FAERS Safety Report 18756497 (Version 1)
Quarter: 2021Q1

REPORT INFORMATION
  Report Type: Spontaneous
  Country: US (occurrence: US)
  Receive Date: 20210118
  Receipt Date: 20210118
  Transmission Date: 20210419
  Serious: Yes (Hospitalization)
  Sender: FDA-Public Use
  Company Number: None

PATIENT
  Age: 68 Year
  Sex: Female

DRUGS (5)
  1. CLACIUM CITRATE [Concomitant]
     Dates: start: 20160519
  2. AFINITOR [Suspect]
     Active Substance: EVEROLIMUS
     Indication: BREAST CANCER
     Route: 048
     Dates: start: 20200922
  3. EXEMESTANE. [Concomitant]
     Active Substance: EXEMESTANE
     Dates: start: 20200915
  4. HYDROCODONE BITARTRATE AND ACETAMINOPHEN [Concomitant]
     Active Substance: ACETAMINOPHEN\HYDROCODONE BITARTRATE
     Dates: start: 20191031
  5. LETROZOLE. [Concomitant]
     Active Substance: LETROZOLE
     Dates: start: 20160812

REACTIONS (2)
  - COVID-19 [None]
  - Abnormal behaviour [None]

NARRATIVE: CASE EVENT DATE: 20210115
